FAERS Safety Report 10523079 (Version 3)
Quarter: 2014Q4

REPORT INFORMATION
  Report Type: Spontaneous
  Country: GB (occurrence: None)
  Receive Date: 20141010
  Receipt Date: 20141202
  Transmission Date: 20150528
  Serious: No
  Sender: FDA-Public Use
  Company Number: GB-LHC-2014080

PATIENT
  Sex: Male

DRUGS (13)
  1. SALBUTAMOL [Concomitant]
     Active Substance: ALBUTEROL
  2. COMPLAN [Concomitant]
  3. QUININE SULPHATE [Concomitant]
     Active Substance: QUININE SULFATE
  4. FOLIC ACID. [Concomitant]
     Active Substance: FOLIC ACID
  5. DIORALYTE [Concomitant]
     Active Substance: CITRIC ACID MONOHYDRATE\DEXTROSE\POTASSIUM CATION\SODIUM CHLORIDE
  6. OMEPRAZOLE. [Concomitant]
     Active Substance: OMEPRAZOLE
  7. GLYCERYL TRINITRATE [Concomitant]
     Active Substance: NITROGLYCERIN
  8. RAMIPRIL. [Concomitant]
     Active Substance: RAMIPRIL
  9. LOPERAMIDE [Concomitant]
     Active Substance: LOPERAMIDE
  10. TRAMADOL [Concomitant]
     Active Substance: TRAMADOL
  11. ASPIRIN. [Concomitant]
     Active Substance: ASPIRIN
  12. OXYGEN, COMPRESSED [Suspect]
     Active Substance: OXYGEN
     Indication: PRODUCT USED FOR UNKNOWN INDICATION
     Dosage: LONG-TERM OXYGEN TREATMENT, INHALATION?
     Route: 055
  13. BUPRENORPHINE [Concomitant]
     Active Substance: BUPRENORPHINE

REACTIONS (3)
  - Road traffic accident [None]
  - Confusional state [None]
  - Loss of consciousness [None]

NARRATIVE: CASE EVENT DATE: 2014
